FAERS Safety Report 14128738 (Version 1)
Quarter: 2017Q4

REPORT INFORMATION
  Report Type: Spontaneous
  Country: US (occurrence: None)
  Receive Date: 20171026
  Receipt Date: 20171026
  Transmission Date: 20180321
  Serious: No
  Sender: FDA-Public Use
  Company Number: None

PATIENT
  Age: 73 Year
  Sex: Female

DRUGS (1)
  1. SILDENAFIL TAB 20 MG AMNEAL PHARMACEUTICALS [Suspect]
     Active Substance: SILDENAFIL
     Route: 048

REACTIONS (2)
  - Therapy cessation [None]
  - Rectal prolapse [None]

NARRATIVE: CASE EVENT DATE: 20170820
